FAERS Safety Report 5317094-1 (Version None)
Quarter: 2007Q2

REPORT INFORMATION
  Report Type: 
  Country: None (occurrence: None)
  Receive Date: 20070504
  Receipt Date: 20070424
  Transmission Date: 20071010
  Serious: Yes (Other)
  Sender: FDA-Public Use
  Company Number: CN-ROCHE-495316

PATIENT
  Age: 15 Year
  Sex: Male

DRUGS (1)
  1. CEFTRIAXONE SODIUM [Suspect]
     Dosage: THE PATEINT WAS GIVEN 3.0GRAM CEFTRIAXONE SODIUM ADN 250 ML SODIUM CHLORIDE.
     Route: 041

REACTIONS (1)
  - ANAPHYLACTIC SHOCK [None]
